FAERS Safety Report 7750658-4 (Version None)
Quarter: 2011Q3

REPORT INFORMATION
  Report Type: 
  Country: None (occurrence: None)
  Receive Date: 20110914
  Receipt Date: 20110905
  Transmission Date: 20111222
  Serious: Yes (Other)
  Sender: FDA-Public Use
  Company Number: FR-VIIV HEALTHCARE LIMITED-B0745274A

PATIENT
  Sex: Male
  Weight: 99 kg

DRUGS (3)
  1. NORVIR [Concomitant]
     Indication: HIV INFECTION
     Route: 065
     Dates: start: 20100801
  2. ABACAVIR SULFATE AND LAMIVUDINE [Suspect]
     Indication: HIV INFECTION
     Dosage: 1UNIT PER DAY
     Route: 048
     Dates: start: 20100801, end: 20110705
  3. PREZISTA [Concomitant]
     Indication: HIV INFECTION
     Route: 065
     Dates: start: 20100801

REACTIONS (1)
  - HEPATOCELLULAR INJURY [None]
